FAERS Safety Report 5709374-2 (Version None)
Quarter: 2008Q2

REPORT INFORMATION
  Report Type: 
  Country: None (occurrence: None)
  Receive Date: 20080418
  Receipt Date: 20080416
  Transmission Date: 20081010
  Serious: Yes (Other)
  Sender: FDA-Public Use
  Company Number: US-BRISTOL-MYERS SQUIBB COMPANY-14154454

PATIENT
  Age: 27 Year
  Sex: Female

DRUGS (2)
  1. GLUCOPHAGE [Suspect]
  2. SEROPHENE [Suspect]
     Indication: ANOVULATORY CYCLE

REACTIONS (3)
  - ABORTION SPONTANEOUS [None]
  - DIARRHOEA [None]
  - PREGNANCY [None]
